FAERS Safety Report 8017705-6 (Version None)
Quarter: 2012Q1

REPORT INFORMATION
  Report Type: 
  Country: None (occurrence: None)
  Receive Date: 20120103
  Receipt Date: 20111229
  Transmission Date: 20120608
  Serious: No
  Sender: FDA-Public Use
  Company Number: US-PFIZER INC-2011316488

PATIENT
  Sex: Female

DRUGS (2)
  1. CHILDREN'S ADVIL [Suspect]
     Indication: VOMITING
  2. CHILDREN'S ADVIL [Suspect]
     Indication: NAUSEA
     Dosage: UNK

REACTIONS (1)
  - VOMITING [None]
